FAERS Safety Report 4949276-2 (Version None)
Quarter: 2006Q1

REPORT INFORMATION
  Report Type: 
  Country: None (occurrence: None)
  Receive Date: 20060315
  Receipt Date: 20060306
  Transmission Date: 20060701
  Serious: Yes (Other)
  Sender: FDA-Public Use
  Company Number: 2006033586

PATIENT
  Age: 77 Year
  Sex: Female
  Weight: 58.0604 kg

DRUGS (4)
  1. NORVASC [Suspect]
     Indication: ATRIOVENTRICULAR BLOCK
     Dosage: 5 MG (5 MG, 1 IN 1 24 HR), ORAL
     Route: 048
  2. LEVOXYL [Concomitant]
  3. MAXZIDE [Concomitant]
  4. PREMARIN [Concomitant]

REACTIONS (2)
  - FALL [None]
  - HIP SURGERY [None]
